FAERS Safety Report 13811882 (Version 1)
Quarter: 2017Q3

REPORT INFORMATION
  Report Type: Report from Study
  Country: US (occurrence: US)
  Receive Date: 20170728
  Receipt Date: 20170728
  Transmission Date: 20171127
  Serious: No
  Sender: FDA-Public Use
  Company Number: US-AMGEN-USASL2017093708

PATIENT
  Age: 69 Year
  Sex: Female

DRUGS (1)
  1. REPATHA [Suspect]
     Active Substance: EVOLOCUMAB
     Indication: LOW DENSITY LIPOPROTEIN INCREASED
     Dosage: UNK UNK, Q2WK
     Route: 065
     Dates: start: 20170529

REACTIONS (4)
  - Feeling abnormal [Unknown]
  - Arthralgia [Unknown]
  - Bone pain [Unknown]
  - Joint instability [Unknown]

NARRATIVE: CASE EVENT DATE: 2017
